FAERS Safety Report 5244828-7 (Version None)
Quarter: 2007Q1

REPORT INFORMATION
  Report Type: 
  Country: None (occurrence: None)
  Receive Date: 20070216
  Receipt Date: 20070205
  Transmission Date: 20070707
  Serious: Yes (Life-Threatening)
  Sender: FDA-Public Use
  Company Number: 236154

PATIENT
  Age: 42 Year
  Sex: Female
  Weight: 53 kg

DRUGS (4)
  1. MABTHERA(RITUXIMAB) CONC FOR SOLUTION FOR INFUSION [Suspect]
     Indication: ANAEMIA HAEMOLYTIC AUTOIMMUNE
     Dosage: 500 MG, QD, INTRAVENOUS
     Route: 042
     Dates: start: 20061201, end: 20061201
  2. TAVEGIL (CLEMASTINE FUMARATE) [Suspect]
     Dosage: 2 MG, INTRAVENOUS
     Route: 042
     Dates: start: 20061201
  3. SOLU-DECORTIN (PREDNISOLONE HEMISUCCINATE) [Suspect]
     Dosage: 100 MG, INTRAVENOUS
     Route: 042
     Dates: start: 20061201
  4. FOSAMAX [Concomitant]

REACTIONS (3)
  - AMNESIA [None]
  - AREFLEXIA [None]
  - COMA [None]
